FAERS Safety Report 7304152-5 (Version None)
Quarter: 2011Q1

REPORT INFORMATION
  Report Type: 
  Country: None (occurrence: None)
  Receive Date: 20110221
  Receipt Date: 20110218
  Transmission Date: 20110831
  Serious: Yes (Death)
  Sender: FDA-Public Use
  Company Number: JP-ABBOTT-11P-087-0699863-00

PATIENT
  Sex: Female

DRUGS (14)
  1. METHOTREXATE [Concomitant]
     Route: 048
     Dates: start: 20071006
  2. FOLIC ACID [Concomitant]
     Indication: RHEUMATOID ARTHRITIS
     Route: 048
     Dates: start: 20101006
  3. SULPHASALAZINE [Concomitant]
     Dates: start: 20060501
  4. METHOTREXATE [Concomitant]
     Indication: RHEUMATOID ARTHRITIS
     Route: 048
     Dates: start: 20020701
  5. SULPHASALAZINE [Concomitant]
     Dates: start: 20070901
  6. HUMIRA [Suspect]
     Indication: RHEUMATOID ARTHRITIS
     Route: 058
     Dates: start: 20090905, end: 20101015
  7. SULPHASALAZINE [Concomitant]
     Dates: start: 20080801, end: 20091002
  8. METHOTREXATE [Concomitant]
     Route: 048
     Dates: start: 20070901
  9. METHOTREXATE [Concomitant]
     Route: 048
     Dates: start: 20080801
  10. SULPHASALAZINE [Concomitant]
     Dates: start: 20080801
  11. SULPHASALAZINE [Concomitant]
     Indication: RHEUMATOID ARTHRITIS
     Dates: start: 20030201, end: 20080801
  12. SULPHASALAZINE [Concomitant]
     Dates: start: 20071001
  13. METHOTREXATE [Concomitant]
     Route: 048
     Dates: start: 20041201
  14. METHOTREXATE [Concomitant]
     Route: 048
     Dates: start: 20060501

REACTIONS (1)
  - SUDDEN DEATH [None]
